FAERS Safety Report 7558540-2 (Version None)
Quarter: 2011Q2

REPORT INFORMATION
  Report Type: 
  Country: None (occurrence: None)
  Receive Date: 20110621
  Receipt Date: 20110615
  Transmission Date: 20111010
  Serious: Yes (Hospitalization, Other)
  Sender: FDA-Public Use
  Company Number: US-TEVA-286678USA

PATIENT
  Sex: Male

DRUGS (3)
  1. SILDENAFIL CITRATE [Suspect]
  2. PROAIR HFA [Suspect]
     Indication: EMPHYSEMA
     Dosage: EMERGENCY USE ONLY
     Route: 055
     Dates: start: 20100101
  3. SERETIDE                           /01420901/ [Concomitant]
     Indication: EMPHYSEMA

REACTIONS (3)
  - MYOCARDIAL INFARCTION [None]
  - CHEST PAIN [None]
  - STAPHYLOCOCCAL INFECTION [None]
